FAERS Safety Report 9373435 (Version 1)
Quarter: 2013Q2

REPORT INFORMATION
  Report Type: Spontaneous
  Country: FR (occurrence: FR)
  Receive Date: 20130627
  Receipt Date: 20130630
  Transmission Date: 20140414
  Serious: Yes (Death, Other)
  Sender: FDA-Public Use
  Company Number: FR-TEVA-415733ISR

PATIENT
  Age: 98 Year
  Sex: Female

DRUGS (7)
  1. FUROSEMIDE TEVA 40MG, SCORED TABLET [Suspect]
     Indication: HYPERTENSION
     Dosage: 40 MILLIGRAM DAILY;
     Route: 048
     Dates: start: 20130604, end: 20130605
  2. FUROSEMIDE [Suspect]
     Indication: HYPERTENSION
     Dosage: 20 MILLIGRAM DAILY;
     Dates: start: 20130604, end: 20130604
  3. ROCEFIN [Concomitant]
     Indication: BRONCHITIS
     Route: 058
  4. TAMOXIFENE (CITRATE) [Concomitant]
     Dosage: 1 DOSAGE FORMS DAILY;
     Route: 048
  5. SERETIDE [Concomitant]
  6. BRICANYL L.P. 5 MG, SUSTAINED RELEASE TABLET [Concomitant]
  7. DOLIPRANE [Concomitant]

REACTIONS (2)
  - Death [Fatal]
  - Apnoeic attack [Unknown]
